FAERS Safety Report 5981260-2 (Version None)
Quarter: 2008Q4

REPORT INFORMATION
  Report Type: 
  Country: None (occurrence: None)
  Receive Date: 20081126
  Receipt Date: 20080307
  Transmission Date: 20090506
  Serious: Yes (Hospitalization, Other)
  Sender: FDA-Public Use
  Company Number: 2007BH007220

PATIENT
  Age: 68 Year
  Sex: Male
  Weight: 77 kg

DRUGS (13)
  1. DIANEAL [Suspect]
     Indication: PERITONEAL DIALYSIS
     Dosage: 5 L;IP
     Route: 033
     Dates: end: 20070907
  2. DIANEAL [Suspect]
     Indication: PERITONEAL DIALYSIS
     Dosage: 2 L;IP
     Route: 033
     Dates: end: 20070907
  3. VANCOMYCIN [Concomitant]
  4. FIBER PLUS [Concomitant]
  5. PHOSLO [Concomitant]
  6. OTC PROSTATE FORMULA [Concomitant]
  7. PROCRIT [Concomitant]
  8. AMIODARONE HCL [Concomitant]
  9. ACETYLSALICYLIC ACID [Concomitant]
  10. IRON [Concomitant]
  11. METOPROLOL TARTRATE [Concomitant]
  12. RENAGEL [Concomitant]
  13. PREVACID [Concomitant]

REACTIONS (2)
  - ASTHENIA [None]
  - PERITONITIS BACTERIAL [None]
